FAERS Safety Report 24549389 (Version 1)
Quarter: 2024Q4

REPORT INFORMATION
  Report Type: Other
  Country: AU (occurrence: AU)
  Receive Date: 20241025
  Receipt Date: 20241025
  Transmission Date: 20250114
  Serious: Yes (Other)
  Sender: NOVA LABORATORIES LIMITED
  Company Number: AU-Nova Laboratories Limited-2163823

PATIENT
  Age: 30 Year
  Sex: Male

DRUGS (9)
  1. PURIXAN [Suspect]
     Active Substance: MERCAPTOPURINE
     Indication: Colitis ulcerative
  2. MESALAMINE [Suspect]
     Active Substance: MESALAMINE
  3. PREDNISOLONE [Suspect]
     Active Substance: PREDNISOLONE
  4. PREDNISOLONE [Suspect]
     Active Substance: PREDNISOLONE
  5. PREDNISOLONE [Suspect]
     Active Substance: PREDNISOLONE
  6. METHYLPREDNISOLONE [Suspect]
     Active Substance: METHYLPREDNISOLONE
  7. METHYLPREDNISOLONE [Suspect]
     Active Substance: METHYLPREDNISOLONE
  8. INFLIXIMAB [Suspect]
     Active Substance: INFLIXIMAB
  9. INFLIXIMAB [Suspect]
     Active Substance: INFLIXIMAB

REACTIONS (3)
  - Cytomegalovirus colitis [Recovered/Resolved]
  - Off label use [Unknown]
  - Therapy non-responder [Unknown]
